FAERS Safety Report 22371998 (Version 2)
Quarter: 2023Q2

REPORT INFORMATION
  Report Type: Spontaneous
  Country: US (occurrence: US)
  Receive Date: 20230526
  Receipt Date: 20230606
  Transmission Date: 20230722
  Serious: Yes (Hospitalization)
  Sender: FDA-Public Use
  Company Number: US-VERTEX PHARMACEUTICALS-2023-007604

PATIENT
  Age: 32 Year
  Sex: Female

DRUGS (12)
  1. TRIKAFTA [Suspect]
     Active Substance: ELEXACAFTOR\IVACAFTOR\TEZACAFTOR
     Indication: Cystic fibrosis
     Dosage: 2 ORANGE TABS IN AM; 1 BLUE TAB IN PM
     Route: 048
     Dates: start: 202002
  2. CEFEPIME [Concomitant]
     Active Substance: CEFEPIME HYDROCHLORIDE
     Dosage: Q12H
     Dates: start: 20200927
  3. CEFEPIME [Concomitant]
     Active Substance: CEFEPIME HYDROCHLORIDE
     Dosage: Q8H
     Route: 042
  4. CIPRO [Concomitant]
     Active Substance: CIPROFLOXACIN HYDROCHLORIDE
     Dosage: UNK
     Dates: start: 20201012
  5. PREDNISONE [Concomitant]
     Active Substance: PREDNISONE
     Dosage: TAPER
     Dates: start: 20201209
  6. CASPOFUNGIN [Concomitant]
     Active Substance: CASPOFUNGIN
     Dosage: DAILY
     Dates: start: 20201222
  7. LEVAQUIN [Concomitant]
     Active Substance: LEVOFLOXACIN
     Dosage: UNK
     Dates: start: 20210104
  8. CAYSTON [Concomitant]
     Active Substance: AZTREONAM
  9. DOXYCYCLINE [Concomitant]
     Active Substance: DOXYCYCLINE
     Dosage: UNK
     Dates: start: 20201123
  10. TYLENOL [Concomitant]
     Active Substance: ACETAMINOPHEN
     Indication: Pain
  11. MEROPENEM [Concomitant]
     Active Substance: MEROPENEM
  12. CRESEMBA [Concomitant]
     Active Substance: ISAVUCONAZONIUM SULFATE

REACTIONS (1)
  - Infective pulmonary exacerbation of cystic fibrosis [Not Recovered/Not Resolved]

NARRATIVE: CASE EVENT DATE: 20210124
